FAERS Safety Report 9203392 (Version 1)
Quarter: 2013Q2

REPORT INFORMATION
  Report Type: Spontaneous
  Country: CA (occurrence: CA)
  Receive Date: 20130402
  Receipt Date: 20130402
  Transmission Date: 20140414
  Serious: Yes (Congenital Anomaly)
  Sender: FDA-Public Use
  Company Number: CA-ROXANE LABORATORIES, INC.-2013-BI-02369GD

PATIENT
  Sex: Female

DRUGS (1)
  1. PREDNISONE [Suspect]
     Indication: MATERNAL EXPOSURE DURING PREGNANCY
     Route: 064

REACTIONS (6)
  - Cleft palate [Unknown]
  - Velopharyngeal incompetence [Unknown]
  - Pharyngeal disorder [Recovered/Resolved]
  - Nasopharyngeal reflux [Recovered/Resolved]
  - Otitis media [Unknown]
  - Middle ear effusion [Unknown]
